FAERS Safety Report 13877882 (Version 2)
Quarter: 2018Q3

REPORT INFORMATION
  Report Type: Spontaneous
  Country: US (occurrence: US)
  Receive Date: 20170817
  Receipt Date: 20180906
  Transmission Date: 20181010
  Serious: Yes (Hospitalization, Other)
  Sender: FDA-Public Use
  Company Number: PHHY2017US118126

PATIENT
  Age: 61 Year
  Sex: Female

DRUGS (8)
  1. VORICONAZOLE. [Suspect]
     Active Substance: VORICONAZOLE
     Indication: BRONCHOPULMONARY ASPERGILLOSIS
     Dosage: 200 MG, BID
     Route: 048
  2. VORICONAZOLE. [Interacting]
     Active Substance: VORICONAZOLE
     Dosage: 100 MG, BID
     Route: 065
  3. FLUTICASONE. [Interacting]
     Active Substance: FLUTICASONE
     Indication: CHRONIC SINUSITIS
     Dosage: 500 UG, BID
     Route: 055
  4. TIOTROPIUM [Concomitant]
     Active Substance: TIOTROPIUM
     Indication: PRODUCT USED FOR UNKNOWN INDICATION
     Dosage: 18 UG, QD
     Route: 055
  5. SALMETEROL [Concomitant]
     Active Substance: SALMETEROL
     Indication: PRODUCT USED FOR UNKNOWN INDICATION
     Dosage: 50 UG, BID
     Route: 055
  6. MOMETASONE [Interacting]
     Active Substance: MOMETASONE
     Indication: CHRONIC SINUSITIS
  7. ESOMEPRAZOLE [Concomitant]
     Active Substance: ESOMEPRAZOLE
     Indication: PRODUCT USED FOR UNKNOWN INDICATION
     Dosage: 40 MG, QD
     Route: 048
  8. MOMETASONE [Interacting]
     Active Substance: MOMETASONE
     Indication: CHRONIC OBSTRUCTIVE PULMONARY DISEASE
     Dosage: 50 UG, QD
     Route: 045

REACTIONS (8)
  - Cushing^s syndrome [Recovering/Resolving]
  - Drug level increased [Unknown]
  - Hypothalamic pituitary adrenal axis suppression [Unknown]
  - Drug interaction [Unknown]
  - Central obesity [Recovering/Resolving]
  - Adrenal insufficiency [Recovering/Resolving]
  - Weight increased [Recovering/Resolving]
  - Cortisol decreased [Recovering/Resolving]
